FAERS Safety Report 12922564 (Version 1)
Quarter: 2016Q4

REPORT INFORMATION
  Report Type: Spontaneous
  Country: CN (occurrence: CN)
  Receive Date: 20161109
  Receipt Date: 20161109
  Transmission Date: 20170207
  Serious: Yes (Other)
  Sender: FDA-Public Use
  Company Number: CN-ASTRAZENECA-2016SF17465

PATIENT
  Sex: Male
  Weight: 61 kg

DRUGS (7)
  1. BISOPROLOL FUMARATE. [Suspect]
     Active Substance: BISOPROLOL FUMARATE
     Indication: TACHYCARDIA
     Route: 048
     Dates: start: 20160323, end: 20160605
  2. THIAMAZOLE [Suspect]
     Active Substance: METHIMAZOLE
     Indication: HYPERTHYROIDISM
     Route: 048
     Dates: start: 20160323, end: 20160605
  3. THIAMAZOLE [Suspect]
     Active Substance: METHIMAZOLE
     Indication: HYPERTHYROIDISM
     Route: 048
     Dates: start: 20160606, end: 20160615
  4. POTASSIUM MAGNESIUM ASPARTATE [Suspect]
     Active Substance: MAGNESIUM ASPARTATE\POTASSIUM ASPARTATE
     Indication: SUPPLEMENTATION THERAPY
     Route: 048
     Dates: start: 20160323, end: 20160615
  5. METOPROLOL SUCCINATE. [Suspect]
     Active Substance: METOPROLOL SUCCINATE
     Indication: TACHYCARDIA
     Route: 048
     Dates: start: 20160606, end: 20160615
  6. LEUCOGEN [Suspect]
     Active Substance: LEUCOGEN
     Indication: SUPPLEMENTATION THERAPY
     Route: 048
     Dates: start: 20160323, end: 20160615
  7. LEUCOGEN [Suspect]
     Active Substance: LEUCOGEN
     Indication: LEUKOCYTOSIS
     Route: 048
     Dates: start: 20160323, end: 20160615

REACTIONS (6)
  - Hepatic cyst [None]
  - Lung infection [None]
  - Tachypnoea [Unknown]
  - Hypothyroidism [Unknown]
  - Pleural effusion [None]
  - Chronic obstructive pulmonary disease [None]
